FAERS Safety Report 9831701 (Version 1)
Quarter: 2014Q1

REPORT INFORMATION
  Report Type: Spontaneous
  Country: US (occurrence: US)
  Receive Date: 20140121
  Receipt Date: 20140121
  Transmission Date: 20141002
  Serious: Yes (Other)
  Sender: FDA-Public Use
  Company Number: US-BAYER-2014-009514

PATIENT
  Age: 66 Year
  Sex: Female

DRUGS (1)
  1. STIVARGA [Suspect]
     Indication: COLON CANCER
     Dosage: 120 MG, QD, 21 DAYS FOR 6 MONTHS
     Route: 048

REACTIONS (2)
  - Metastases to central nervous system [None]
  - Drug ineffective [None]
